FAERS Safety Report 17785002 (Version 8)
Quarter: 2020Q3

REPORT INFORMATION
  Report Type: Spontaneous
  Country: DE (occurrence: DE)
  Receive Date: 20200513
  Receipt Date: 20200707
  Transmission Date: 20201102
  Serious: No
  Sender: FDA-Public Use
  Company Number: DE-JNJFOC-20200509497

PATIENT

DRUGS (4)
  1. DUROGESIC SMAT [Suspect]
     Active Substance: FENTANYL
  2. DUROGESIC SMAT [Suspect]
     Active Substance: FENTANYL
     Indication: PRODUCT USED FOR UNKNOWN INDICATION
     Dosage: DUROGESIC 100 MCG/HR
     Route: 062
  3. DUROGESIC SMAT [Suspect]
     Active Substance: FENTANYL
  4. DUROGESIC SMAT [Suspect]
     Active Substance: FENTANYL
     Indication: PRODUCT USED FOR UNKNOWN INDICATION
     Dosage: DUROGESIC 100MG/H 20 PATCHES ORIGINAL
     Route: 062

REACTIONS (2)
  - Underdose [Unknown]
  - Product adhesion issue [Unknown]
